FAERS Safety Report 7398129-1 (Version None)
Quarter: 2011Q2

REPORT INFORMATION
  Report Type: 
  Country: None (occurrence: None)
  Receive Date: 20110406
  Receipt Date: 20110330
  Transmission Date: 20111010
  Serious: Yes (Death, Hospitalization)
  Sender: FDA-Public Use
  Company Number: US-ROCHE-766956

PATIENT
  Sex: Male
  Weight: 66.5 kg

DRUGS (13)
  1. BEVACIZUMAB [Suspect]
     Indication: NON-SMALL CELL LUNG CANCER
     Dosage: DATE OF LAST DOSE: 02 MARCH 2011
     Route: 042
     Dates: start: 20101201
  2. DOCETAXEL [Suspect]
     Dosage: DATE OF LAST DOSE: 02 MARCH 2011
     Route: 042
     Dates: start: 20101201
  3. ACETAMINOPHEN [Concomitant]
     Route: 048
  4. HYDROCODONE BITARTRATE + ACETAMINOPHEN [Concomitant]
     Indication: PAIN
     Dosage: 5/500 MG, PRN Q4HOURS
     Route: 048
  5. CARBOPLATIN [Suspect]
     Dosage: DATE OF LAST DOSE: 02 MARCH 2011
     Route: 042
     Dates: start: 20101201
  6. FOLIC ACID [Concomitant]
     Route: 048
  7. TEMAZEPAM [Concomitant]
     Indication: SOMNOLENCE
     Dosage: FREQUENCY: QHS
     Route: 048
  8. IPRATROPIUM BROMIDE [Concomitant]
     Dosage: 0.5 MG/2.5 ML INHALATION QID
     Route: 055
  9. LORAZEPAM [Concomitant]
     Indication: ANXIETY
     Route: 048
  10. PEMETREXED [Suspect]
     Route: 042
     Dates: start: 20110302
  11. SENNA [Concomitant]
     Indication: CONSTIPATION
     Dosage: BEDTIME
     Route: 048
  12. ALBUTEROL [Concomitant]
     Route: 055
  13. MAGNESIUM SULFATE [Concomitant]
     Dosage: 16 MEQ IN 0.9% NACL 100 ML, INFUSED OVER 120 MINUTES
     Route: 042

REACTIONS (5)
  - ANAEMIA [None]
  - HYPONATRAEMIA [None]
  - DEATH [None]
  - PLEURAL EFFUSION [None]
  - COLLAPSE OF LUNG [None]
